FAERS Safety Report 8047397-1 (Version None)
Quarter: 2012Q1

REPORT INFORMATION
  Report Type: 
  Country: None (occurrence: None)
  Receive Date: 20120116
  Receipt Date: 20120109
  Transmission Date: 20120608
  Serious: Yes (Death, Hospitalization, Other)
  Sender: FDA-Public Use
  Company Number: US-TEVA-317098USA

PATIENT
  Age: 38 Year
  Sex: Female

DRUGS (2)
  1. FLUOROURACIL [Suspect]
     Indication: OESOPHAGEAL CARCINOMA
  2. CISPLATIN [Suspect]
     Indication: OESOPHAGEAL CARCINOMA

REACTIONS (5)
  - GASTROINTESTINAL TOXICITY [None]
  - INTRACRANIAL PRESSURE INCREASED [None]
  - BRAIN OEDEMA [None]
  - OESOPHAGEAL FISTULA [None]
  - GRAND MAL CONVULSION [None]
